FAERS Safety Report 7190389-5 (Version None)
Quarter: 2010Q4

REPORT INFORMATION
  Report Type: 
  Country: None (occurrence: None)
  Receive Date: 20101223
  Receipt Date: 20101214
  Transmission Date: 20110411
  Serious: Yes (Other)
  Sender: FDA-Public Use
  Company Number: CA-JNJFOC-20101205939

PATIENT
  Sex: Male
  Weight: 63 kg

DRUGS (6)
  1. REMICADE [Suspect]
     Indication: ANKYLOSING SPONDYLITIS
     Route: 042
  2. REMICADE [Suspect]
     Route: 042
  3. REMICADE [Suspect]
     Dosage: TODAY'S DOSE 14-DEC-2010 IS #34, LAST DOSE 19-OCT-2010
     Route: 042
  4. IMURAN [Concomitant]
     Route: 048
  5. PANTOLOC [Concomitant]
  6. CELEBREX [Concomitant]

REACTIONS (1)
  - DIARRHOEA [None]
